FAERS Safety Report 8078404-8 (Version None)
Quarter: 2012Q1

REPORT INFORMATION
  Report Type: 
  Country: None (occurrence: None)
  Receive Date: 20120123
  Receipt Date: 20120112
  Transmission Date: 20120608
  Serious: Yes (Death, Other)
  Sender: FDA-Public Use
  Company Number: DSU-2012-00305

PATIENT
  Age: 58 Year
  Sex: Female

DRUGS (1)
  1. BENICAR HCT [Suspect]
     Indication: HYPERTENSION
     Dosage: PER ORAL
     Route: 048
     Dates: end: 20070101

REACTIONS (4)
  - PULMONARY OEDEMA [None]
  - ARRHYTHMIA [None]
  - DYSURIA [None]
  - UMBILICAL HERNIA REPAIR [None]
